FAERS Safety Report 11159620 (Version 2)
Quarter: 2015Q2

REPORT INFORMATION
  Report Type: Report from Study
  Country: US (occurrence: US)
  Receive Date: 20150603
  Receipt Date: 20150626
  Transmission Date: 20150821
  Serious: Yes (Other)
  Sender: FDA-Public Use
  Company Number: US-B.I. PHARMACEUTICALS,INC./RIDGEFIELD-2015-BI-29143BP

PATIENT
  Age: 62 Year
  Sex: Male

DRUGS (4)
  1. OXYGEN. [Concomitant]
     Active Substance: OXYGEN
     Indication: PRODUCT USED FOR UNKNOWN INDICATION
     Dosage: 2-4 LITRES
     Route: 065
  2. LISINOPRIL. [Concomitant]
     Active Substance: LISINOPRIL
     Indication: PRODUCT USED FOR UNKNOWN INDICATION
     Route: 065
  3. OFEV [Suspect]
     Active Substance: NINTEDANIB
     Indication: IDIOPATHIC PULMONARY FIBROSIS
     Dosage: 300 MG
     Route: 048
     Dates: start: 20150422, end: 20150513
  4. OFEV [Suspect]
     Active Substance: NINTEDANIB
     Dosage: 300 MG
     Route: 048
     Dates: start: 20150524

REACTIONS (9)
  - Rash generalised [Not Recovered/Not Resolved]
  - Throat irritation [Not Recovered/Not Resolved]
  - Malaise [Not Recovered/Not Resolved]
  - Chest pain [Recovered/Resolved]
  - Dyspnoea [Not Recovered/Not Resolved]
  - Pneumonia [Unknown]
  - Bronchitis [Unknown]
  - Dyskinesia [Not Recovered/Not Resolved]
  - Muscle twitching [Not Recovered/Not Resolved]

NARRATIVE: CASE EVENT DATE: 20150507
